FAERS Safety Report 5741972-2 (Version None)
Quarter: 2008Q2

REPORT INFORMATION
  Report Type: 
  Country: None (occurrence: None)
  Receive Date: 20080519
  Receipt Date: 20080509
  Transmission Date: 20081010
  Serious: Yes (Hospitalization)
  Sender: FDA-Public Use
  Company Number: US-ELI_LILLY_AND_COMPANY-US200803002946

PATIENT
  Sex: Female
  Weight: 136.5 kg

DRUGS (1)
  1. ZYPREXA [Suspect]
     Dates: start: 19900101, end: 19910101

REACTIONS (6)
  - CEREBROVASCULAR ACCIDENT [None]
  - DRUG DEPENDENCE [None]
  - MONOPLEGIA [None]
  - NEUROPATHY PERIPHERAL [None]
  - THROMBOSIS [None]
  - TYPE 1 DIABETES MELLITUS [None]
